FAERS Safety Report 6702743-3 (Version None)
Quarter: 2010Q2

REPORT INFORMATION
  Report Type: 
  Country: None (occurrence: None)
  Receive Date: 20100428
  Receipt Date: 20100413
  Transmission Date: 20101027
  Serious: Yes (Other)
  Sender: FDA-Public Use
  Company Number: 2009002757

PATIENT
  Age: 68 Year
  Sex: Female
  Weight: 43.8 kg

DRUGS (3)
  1. ERLOTINIB HYDROCHLORIDE [Suspect]
     Indication: LUNG ADENOCARCINOMA
     Dosage: 150 MG, QD, ORAL
     Route: 048
     Dates: start: 20081128, end: 20090201
  2. ERLOTINIB HYDROCHLORIDE [Suspect]
     Indication: LUNG ADENOCARCINOMA
     Dosage: 150 MG, QD, ORAL
     Route: 048
     Dates: start: 20090219
  3. BIOFERMIN        (BIOFERMIN) [Concomitant]

REACTIONS (2)
  - DERMATITIS ACNEIFORM [None]
  - HENOCH-SCHONLEIN PURPURA [None]
